FAERS Safety Report 24111849 (Version 1)
Quarter: 2024Q3

REPORT INFORMATION
  Report Type: Spontaneous
  Country: BR (occurrence: BR)
  Receive Date: 20240718
  Receipt Date: 20240718
  Transmission Date: 20241017
  Serious: Yes (Death, Other)
  Sender: BEIGENE
  Company Number: BR-BEIGENE-BGN-2024-011201

PATIENT

DRUGS (1)
  1. BRUKINSA [Suspect]
     Active Substance: ZANUBRUTINIB
     Indication: Mantle cell lymphoma
     Dosage: 160 MILLIGRAM, BID
     Route: 048
     Dates: start: 202404

REACTIONS (3)
  - Sepsis [Fatal]
  - Neutropenia [Fatal]
  - Lip and/or oral cavity cancer [Unknown]
